FAERS Safety Report 20512680 (Version 1)
Quarter: 2022Q1

REPORT INFORMATION
  Report Type: Spontaneous
  Country: US (occurrence: None)
  Receive Date: 20220224
  Receipt Date: 20220224
  Transmission Date: 20220423
  Serious: Yes (Other)
  Sender: FDA-Public Use
  Company Number: None

PATIENT
  Age: 55 Year
  Sex: Female
  Weight: 54 kg

DRUGS (2)
  1. VUITY [Suspect]
     Active Substance: PILOCARPINE HYDROCHLORIDE
     Indication: Presbyopia
     Dosage: FREQUENCY : DAILY;?
     Dates: start: 20220220, end: 20220220
  2. VUITY [Concomitant]
     Active Substance: PILOCARPINE HYDROCHLORIDE
     Dates: start: 20220220, end: 20220220

REACTIONS (3)
  - Visual impairment [None]
  - Vitreous floaters [None]
  - Retinal detachment [None]

NARRATIVE: CASE EVENT DATE: 20220220
